FAERS Safety Report 24254746 (Version 3)
Quarter: 2025Q1

REPORT INFORMATION
  Report Type: Spontaneous
  Country: CA (occurrence: CA)
  Receive Date: 20240827
  Receipt Date: 20250211
  Transmission Date: 20250409
  Serious: Yes (Disabling)
  Sender: ALEXION PHARMACEUTICALS
  Company Number: 2024A194481

PATIENT
  Age: 76 Year

DRUGS (2)
  1. CANDESARTAN CILEXETIL [Suspect]
     Active Substance: CANDESARTAN CILEXETIL
     Route: 065
  2. QUETIAPINE FUMARATE [Suspect]
     Active Substance: QUETIAPINE FUMARATE
     Route: 065

REACTIONS (7)
  - Cogwheel rigidity [Not Recovered/Not Resolved]
  - Eyelid function disorder [Not Recovered/Not Resolved]
  - Fall [Not Recovered/Not Resolved]
  - Gait disturbance [Not Recovered/Not Resolved]
  - Orthostatic hypotension [Not Recovered/Not Resolved]
  - Sedation [Not Recovered/Not Resolved]
  - Tremor [Not Recovered/Not Resolved]
